FAERS Safety Report 10044635 (Version 1)
Quarter: 2014Q1

REPORT INFORMATION
  Report Type: Spontaneous
  Country: CA (occurrence: None)
  Receive Date: 20140326
  Receipt Date: 20140326
  Transmission Date: 20141002
  Serious: Yes (Hospitalization)
  Sender: FDA-Public Use
  Company Number: 2014AP002161

PATIENT
  Age: 74 Year
  Sex: Female

DRUGS (8)
  1. MIRTAZAPINE [Suspect]
     Indication: MAJOR DEPRESSION
     Dosage: 30 MG;QD; UNK
  2. FUROSEMIDE [Suspect]
     Indication: OEDEMA PERIPHERAL
     Dosage: 40 MG;QD; UNK
  3. LACTULOSE [Suspect]
     Indication: CONSTIPATION
     Dosage: 30 ML;QD; UNK
  4. BISACODYL [Suspect]
     Indication: CONSTIPATION
     Dosage: 10 MG;QD; UNK
  5. DIMENHYDRINATE [Suspect]
     Indication: VOMITING
     Dosage: 50 MG;Q4H; UNK
  6. SODIUM DIOCTYL SULFOSUCCINATE [Suspect]
     Indication: CONSTIPATION
     Dosage: 200 MG;QD; UNK
  7. SODIUM PHOSPHATE [Suspect]
     Indication: CONSTIPATION
     Dosage: 130 ML;QD; UNK
  8. MORPHINE [Suspect]
     Indication: PAIN
     Dosage: 30 MG;Q4H; UNK

REACTIONS (5)
  - Colonic pseudo-obstruction [None]
  - Delirium [None]
  - Urinary retention [None]
  - Myocardial infarction [None]
  - Sudden death [None]
